FAERS Safety Report 12670286 (Version 2)
Quarter: 2016Q4

REPORT INFORMATION
  Report Type: Report from Study
  Country: None (occurrence: BR)
  Receive Date: 20160821
  Receipt Date: 20161221
  Transmission Date: 20170207
  Serious: Yes (Other)
  Sender: FDA-Public Use
  Company Number: BR-ABBVIE-16K-020-1702595-00

PATIENT
  Sex: Female
  Weight: 60 kg

DRUGS (21)
  1. PANTOPRAZOLE [Concomitant]
     Active Substance: PANTOPRAZOLE SODIUM
     Indication: PROPHYLAXIS
  2. LEVOID [Concomitant]
     Active Substance: LEVOTHYROXINE
     Indication: THYROID DISORDER
     Route: 048
     Dates: start: 2010
  3. DIOSMIN [Concomitant]
     Active Substance: DIOSMIN
     Indication: CARDIOVASCULAR DISORDER
     Route: 048
     Dates: start: 2012
  4. HESPERIDIN [Concomitant]
     Active Substance: HESPERIDIN
     Indication: CARDIOVASCULAR DISORDER
     Route: 048
     Dates: start: 2011
  5. HUMIRA [Suspect]
     Active Substance: ADALIMUMAB
     Indication: RHEUMATOID ARTHRITIS
     Route: 058
     Dates: start: 20140128
  6. GLIFAGE [Concomitant]
     Active Substance: METFORMIN HYDROCHLORIDE
     Indication: DIABETES MELLITUS
     Dosage: XTENDED RELEASE
     Route: 048
     Dates: start: 2015
  7. FLUOXETINE [Concomitant]
     Active Substance: FLUOXETINE HYDROCHLORIDE
     Indication: DEPRESSION
     Route: 048
     Dates: start: 2001
  8. CALCIUM [Concomitant]
     Active Substance: CALCIUM
     Indication: PRODUCT USED FOR UNKNOWN INDICATION
     Route: 048
     Dates: start: 2001
  9. CIMICIFUGA RACEMOSA [Concomitant]
     Indication: MENOPAUSE
     Route: 048
     Dates: start: 2011
  10. PROLIA [Concomitant]
     Active Substance: DENOSUMAB
     Indication: OSTEOPOROSIS
     Route: 030
     Dates: start: 2014
  11. VITAMIN D [Concomitant]
     Active Substance: CHOLECALCIFEROL
     Indication: VITAMIN D DEFICIENCY
     Route: 048
  12. CIMICIFUGA RACEMOSA [Concomitant]
     Indication: HOT FLUSH
  13. CALCIUM CARBONATE. [Concomitant]
     Active Substance: CALCIUM CARBONATE
     Indication: CALCIUM METABOLISM DISORDER
     Route: 048
     Dates: start: 2001
  14. BEZAFIBRATE [Concomitant]
     Active Substance: BEZAFIBRATE
     Indication: BLOOD TRIGLYCERIDES INCREASED
     Route: 048
     Dates: start: 2013
  15. LACTASE [Concomitant]
     Active Substance: LACTASE
     Indication: PRODUCT USED FOR UNKNOWN INDICATION
     Dosage: 250 OR 500 MILLIGRAMS
     Route: 048
     Dates: start: 2015
  16. PRELONE [Concomitant]
     Active Substance: PREDNISOLONE
     Indication: RHEUMATOID ARTHRITIS
     Route: 048
     Dates: start: 1995
  17. FLUOXETINE [Concomitant]
     Active Substance: FLUOXETINE HYDROCHLORIDE
     Indication: ANXIETY
  18. TYROSINE [Concomitant]
     Active Substance: TYROSINE
     Indication: CARDIOVASCULAR DISORDER
     Route: 048
     Dates: start: 2011
  19. HUMIRA [Suspect]
     Active Substance: ADALIMUMAB
     Route: 058
  20. FLUOXETINE [Concomitant]
     Active Substance: FLUOXETINE HYDROCHLORIDE
     Indication: SLEEP DISORDER THERAPY
  21. PANTOPRAZOLE [Concomitant]
     Active Substance: PANTOPRAZOLE SODIUM
     Indication: GASTRIC DISORDER
     Route: 048
     Dates: start: 2001

REACTIONS (7)
  - Intervertebral disc protrusion [Not Recovered/Not Resolved]
  - Nerve compression [Recovering/Resolving]
  - Somnolence [Not Recovered/Not Resolved]
  - Bone pain [Recovered/Resolved]
  - Bone erosion [Recovering/Resolving]
  - Hypoaesthesia [Recovered/Resolved]
  - Sciatic nerve neuropathy [Recovered/Resolved]

NARRATIVE: CASE EVENT DATE: 2014
